FAERS Safety Report 8919196 (Version 2)
Quarter: 2014Q1

REPORT INFORMATION
  Report Type: Spontaneous
  Country: SE (occurrence: SE)
  Receive Date: 20121121
  Receipt Date: 20140313
  Transmission Date: 20141002
  Serious: Yes (Hospitalization, Other)
  Sender: FDA-Public Use
  Company Number: SE-009507513-2012SP021154

PATIENT
  Age: 34 Year
  Sex: Female

DRUGS (3)
  1. PUREGON [Suspect]
     Indication: ENDOMETRIOSIS
     Dosage: DOSE: 0.8 ML; 900 IU CARTRIDGE/1.08 ML.
     Route: 058
     Dates: start: 2009, end: 20090501
  2. PUREGON [Suspect]
     Indication: IN VITRO FERTILISATION
  3. NAFARELIN ACETATE [Suspect]
     Indication: IN VITRO FERTILISATION
     Dosage: DOSE: 200 MCG PER DOSE
     Route: 045
     Dates: start: 2009, end: 2009

REACTIONS (4)
  - Vascular dissection [Recovered/Resolved with Sequelae]
  - Cerebral infarction [Recovered/Resolved with Sequelae]
  - Off label use [Recovered/Resolved]
  - Thrombosis [Unknown]
